FAERS Safety Report 12801836 (Version 1)
Quarter: 2016Q4

REPORT INFORMATION
  Report Type: Spontaneous
  Country: US (occurrence: US)
  Receive Date: 20161003
  Receipt Date: 20161003
  Transmission Date: 20170207
  Serious: No
  Sender: FDA-Public Use
  Company Number: US-PFIZER INC-2016456423

PATIENT
  Sex: Male

DRUGS (1)
  1. PROCARDIA [Suspect]
     Active Substance: NIFEDIPINE
     Dosage: 30 MG, UNK

REACTIONS (2)
  - Herpes zoster [Recovered/Resolved]
  - Arthralgia [Unknown]
